FAERS Safety Report 8593796-9 (Version None)
Quarter: 2012Q3

REPORT INFORMATION
  Report Type: 
  Country: None (occurrence: None)
  Receive Date: 20120814
  Receipt Date: 20120801
  Transmission Date: 20120928
  Serious: Yes (Hospitalization)
  Sender: FDA-Public Use
  Company Number: JP-BAXTER-2012BH002593

PATIENT
  Sex: Male
  Weight: 58 kg

DRUGS (4)
  1. DIANEAL PD-2 W/ DEXTROSE 4.25% [Suspect]
     Indication: RENAL FAILURE CHRONIC
     Route: 033
     Dates: start: 20110914, end: 20111212
  2. DIANEAL PD-2 W/ DEXTROSE 4.25% [Suspect]
     Route: 033
  3. RASILEZ [Concomitant]
     Route: 048
  4. PREDNISOLONE [Concomitant]

REACTIONS (1)
  - HYPERGLYCAEMIA [None]
